FAERS Safety Report 8809796 (Version 2)
Quarter: 2012Q4

REPORT INFORMATION
  Report Type: 
  Country: AU (occurrence: AU)
  Receive Date: 20120926
  Receipt Date: 20121008
  Transmission Date: 20130627
  Serious: Yes (Death)
  Sender: FDA-Public Use
  Company Number: AU-B.I. PHARMACEUTICALS,INC./RIDGEFIELD-2012-AU-01647AU

PATIENT
  Age: 67 Year
  Sex: Female
  Weight: 68 kg

DRUGS (9)
  1. PRADAXA [Suspect]
     Indication: CEREBROVASCULAR ACCIDENT PROPHYLAXIS
     Dosage: 300 mg
     Dates: start: 20110919
  2. PRADAXA [Suspect]
     Indication: ATRIAL FIBRILLATION
  3. AVANZA [Concomitant]
  4. GLYADE [Concomitant]
  5. LASIX [Concomitant]
  6. LIPIDIL [Concomitant]
  7. SOMAC [Concomitant]
  8. SOTALOL [Concomitant]
     Dosage: 80 mg
  9. SPIRONOLACTONE [Concomitant]

REACTIONS (2)
  - Sudden death [Fatal]
  - Renal impairment [Unknown]
